FAERS Safety Report 10150976 (Version 1)
Quarter: 2014Q2

REPORT INFORMATION
  Report Type: Report from Study
  Country: NZ (occurrence: GB)
  Receive Date: 20140502
  Receipt Date: 20140502
  Transmission Date: 20141212
  Serious: Yes (Death, Other)
  Sender: FDA-Public Use
  Company Number: NZ-PFIZER INC-2014117592

PATIENT
  Age: 74 Year
  Sex: Female

DRUGS (2)
  1. CLINDAMYCIN PHOSPHATE [Suspect]
     Indication: ANTIBIOTIC PROPHYLAXIS
     Dosage: 150 MG OF ORAL CLINDAMYCIN 8-HOURLY
     Route: 048
  2. LINCOMYCIN [Suspect]
     Indication: PROPHYLAXIS
     Dosage: 600 MG, UNK
     Route: 030

REACTIONS (3)
  - Abdominal sepsis [Fatal]
  - Pseudomembranous colitis [Not Recovered/Not Resolved]
  - Peritonitis [Not Recovered/Not Resolved]
